FAERS Safety Report 6027388-2 (Version None)
Quarter: 2009Q1

REPORT INFORMATION
  Report Type: 
  Country: None (occurrence: None)
  Receive Date: 20090105
  Receipt Date: 20081225
  Transmission Date: 20090719
  Serious: Yes (Life-Threatening)
  Sender: FDA-Public Use
  Company Number: JP-PFIZER INC-2008157129

PATIENT

DRUGS (5)
  1. NORVASC [Suspect]
     Dosage: UNK
     Route: 048
  2. LOSARTAN POTASSIUM AND HYDROCHLOROTHIAZIDE [Suspect]
     Route: 048
  3. MAINTATE [Suspect]
     Dosage: UNK
     Route: 048
  4. TRYPTANOL [Suspect]
     Dosage: UNK
     Route: 048
  5. PANTOSIN [Suspect]
     Dosage: UNK

REACTIONS (3)
  - INTENTIONAL OVERDOSE [None]
  - MULTIPLE DRUG OVERDOSE INTENTIONAL [None]
  - SHOCK [None]
